FAERS Safety Report 22046320 (Version 3)
Quarter: 2023Q1

REPORT INFORMATION
  Report Type: Spontaneous
  Country: BR (occurrence: BR)
  Receive Date: 20230228
  Receipt Date: 20230329
  Transmission Date: 20230417
  Serious: Yes (Other)
  Sender: FDA-Public Use
  Company Number: BR-009507513-2302BRA008368

PATIENT
  Sex: Female
  Weight: 80 kg

DRUGS (4)
  1. JANUMET [Suspect]
     Active Substance: METFORMIN HYDROCHLORIDE\SITAGLIPTIN PHOSPHATE
     Indication: Diabetes mellitus
     Dosage: STRENGTH 50/850 MG, 1 TABLET AT MORNING AND 1 TABLET AT NIGHT
     Route: 048
     Dates: start: 2013, end: 2015
  2. JANUMET [Suspect]
     Active Substance: METFORMIN HYDROCHLORIDE\SITAGLIPTIN PHOSPHATE
     Indication: Diabetes mellitus
     Dosage: STRENGTH 50/1000 MG, 1 TABLET AT MORNING AND 1 TABLET AT NIGHT
     Route: 048
     Dates: start: 2015
  3. EZETIMIBE [Concomitant]
     Active Substance: EZETIMIBE
     Dosage: 10 MG, 1 TABLET AT NIGHT
     Dates: start: 2019
  4. JARDIANCE [Concomitant]
     Active Substance: EMPAGLIFLOZIN
     Indication: Diabetes mellitus
     Dosage: 25 MG, 1 TABLET ONCE A DAY
     Dates: start: 2015

REACTIONS (5)
  - Arrhythmia [Recovered/Resolved]
  - Ill-defined disorder [Unknown]
  - Blood cholesterol abnormal [Recovering/Resolving]
  - Diarrhoea [Recovering/Resolving]
  - Vitamin B12 deficiency [Unknown]

NARRATIVE: CASE EVENT DATE: 20150101
